FAERS Safety Report 18569312 (Version 1)
Quarter: 2020Q4

REPORT INFORMATION
  Report Type: Spontaneous
  Country: US (occurrence: US)
  Receive Date: 20201202
  Receipt Date: 20201202
  Transmission Date: 20210114
  Serious: No
  Sender: FDA-Public Use
  Company Number: US-DECIPHERA PHARMACEUTICALS LLC-2020-US-000510

PATIENT
  Sex: Female

DRUGS (2)
  1. QINLOCK [Suspect]
     Active Substance: RIPRETINIB
     Indication: NEOPLASM MALIGNANT
     Dosage: 150 MILLIGRAM, QD
     Route: 048
     Dates: start: 20200922
  2. QINLOCK [Suspect]
     Active Substance: RIPRETINIB
     Dosage: 100 MILLIGRAM, QD
     Route: 048

REACTIONS (8)
  - Constipation [Unknown]
  - Asthenia [Unknown]
  - Disease progression [Unknown]
  - Blood pressure increased [Unknown]
  - Diarrhoea [Unknown]
  - Alopecia [Unknown]
  - Abdominal pain lower [Unknown]
  - Product use in unapproved indication [Unknown]
